FAERS Safety Report 18411077 (Version 1)
Quarter: 2020Q4

REPORT INFORMATION
  Report Type: Spontaneous
  Country: JP (occurrence: JP)
  Receive Date: 20201021
  Receipt Date: 20201021
  Transmission Date: 20210114
  Serious: Yes (Hospitalization, Other)
  Sender: FDA-Public Use
  Company Number: JP-MICRO LABS LIMITED-ML2020-03092

PATIENT
  Age: 45 Year
  Sex: Male

DRUGS (10)
  1. MEROPENEM. [Suspect]
     Active Substance: MEROPENEM
     Indication: PNEUMONIA PSEUDOMONAL
  2. IDARUBICIN HYDROCHLORIDE. [Suspect]
     Active Substance: IDARUBICIN HYDROCHLORIDE
     Indication: ACUTE MYELOID LEUKAEMIA
     Dosage: 12 MG/M2
  3. CYTOSINE ARABINOSIDE [Suspect]
     Active Substance: CYTARABINE
     Dosage: 2000 MG/ M2 AS CONSOLIDATION THERAPY
  4. CEFOZOPRAN [Suspect]
     Active Substance: CEFOZOPRAN
     Indication: CELLULITIS
  5. AMIKACIN. [Suspect]
     Active Substance: AMIKACIN
     Indication: PNEUMONIA PSEUDOMONAL
  6. LEVOFLOXACIN. [Suspect]
     Active Substance: LEVOFLOXACIN
     Indication: ANTIBIOTIC THERAPY
  7. CYTOSINE ARABINOSIDE [Suspect]
     Active Substance: CYTARABINE
     Indication: ACUTE MYELOID LEUKAEMIA
     Dosage: 100 MG/M2/DAY
  8. CEFOZOPRAN [Suspect]
     Active Substance: CEFOZOPRAN
     Indication: FEBRILE NEUTROPENIA
  9. MEROPENEM. [Suspect]
     Active Substance: MEROPENEM
     Indication: CELLULITIS
  10. VANCOMYCIN [Suspect]
     Active Substance: VANCOMYCIN
     Indication: CELLULITIS

REACTIONS (2)
  - Stenotrophomonas infection [Recovered/Resolved]
  - Haemorrhagic pneumonia [Recovered/Resolved]
